FAERS Safety Report 18643559 (Version 1)
Quarter: 2020Q4

REPORT INFORMATION
  Report Type: Spontaneous
  Country: ZA (occurrence: ZA)
  Receive Date: 20201221
  Receipt Date: 20201221
  Transmission Date: 20210114
  Serious: Yes (Other)
  Sender: FDA-Public Use
  Company Number: ZA-PFIZER INC-2020501932

PATIENT
  Age: 73 Year
  Sex: Male
  Weight: 66 kg

DRUGS (5)
  1. PREDNISONE. [Suspect]
     Active Substance: PREDNISONE
     Dosage: 5 - 10MG DAILY
     Dates: start: 19900101
  2. METHOTREXATE. [Suspect]
     Active Substance: METHOTREXATE
     Dosage: 15 MG, WEEKLY
     Dates: start: 19960101
  3. SIMPONI [Concomitant]
     Active Substance: GOLIMUMAB
     Dosage: UNK
     Dates: start: 201610, end: 202004
  4. COSENTYX [Concomitant]
     Active Substance: SECUKINUMAB
     Dosage: UNK
     Dates: start: 202004
  5. HUMIRA [Concomitant]
     Active Substance: ADALIMUMAB
     Dosage: UNK (FORTNIGHTLY)
     Dates: start: 20100401, end: 201610

REACTIONS (8)
  - Asbestosis [Unknown]
  - C-reactive protein increased [Unknown]
  - Scleroderma [Recovered/Resolved]
  - Benign prostatic hyperplasia [Unknown]
  - Osteoporosis [Unknown]
  - Blood creatinine increased [Unknown]
  - Haemoglobin decreased [Unknown]
  - White blood cell count increased [Unknown]

NARRATIVE: CASE EVENT DATE: 20100330
